FAERS Safety Report 9189466 (Version 1)
Quarter: 2013Q1

REPORT INFORMATION
  Report Type: Spontaneous
  Country: US (occurrence: None)
  Receive Date: 20130326
  Receipt Date: 20130326
  Transmission Date: 20140127
  Serious: Yes (Hospitalization)
  Sender: FDA-Public Use
  Company Number: None

PATIENT
  Age: 63 Year
  Sex: 0
  Weight: 76.2 kg

DRUGS (3)
  1. METHYLPREDNISOLONE ACETATE [Suspect]
     Indication: VERTEBRAL FORAMINAL STENOSIS
     Dosage: 80MG/ML  PRN  EPIDURAL
     Route: 008
     Dates: start: 20120717, end: 20120926
  2. METHYLPREDNISOLONE ACETATE [Suspect]
     Indication: INTERVERTEBRAL DISC DEGENERATION
     Dosage: 80MG/ML  PRN  EPIDURAL
     Route: 008
     Dates: start: 20120717, end: 20120926
  3. METHYLPREDNISOLONE ACETATE [Suspect]
     Indication: OSTEOARTHRITIS
     Dosage: 80MG/ML  PRN  EPIDURAL
     Route: 008
     Dates: start: 20120717, end: 20120926

REACTIONS (6)
  - Nausea [None]
  - Headache [None]
  - Musculoskeletal stiffness [None]
  - Pyrexia [None]
  - Neck pain [None]
  - Gastrointestinal disorder [None]
